FAERS Safety Report 13507562 (Version 12)
Quarter: 2018Q3

REPORT INFORMATION
  Report Type: Spontaneous
  Country: US (occurrence: US)
  Receive Date: 20170503
  Receipt Date: 20180712
  Transmission Date: 20181010
  Serious: Yes (Hospitalization, Disabling, Other)
  Sender: FDA-Public Use
  Company Number: US-UCBSA-2017016408

PATIENT
  Age: 66 Year
  Sex: Female
  Weight: 72 kg

DRUGS (33)
  1. HYDROCODONE [Suspect]
     Active Substance: HYDROCODONE
     Indication: PAIN
  2. MAGNESIUM [Concomitant]
     Active Substance: MAGNESIUM
     Indication: SUPPLEMENTATION THERAPY
  3. VIMPAT [Suspect]
     Active Substance: LACOSAMIDE
     Indication: SEIZURE
     Dosage: UNK
     Route: 048
     Dates: start: 20160531, end: 201610
  4. SYNTHROID [Suspect]
     Active Substance: LEVOTHYROXINE SODIUM
     Dosage: 37.5 MG EVERY SUNDAY
     Route: 048
  5. VITAMIN E [Concomitant]
     Active Substance: .ALPHA.-TOCOPHEROL
     Indication: SUPPLEMENTATION THERAPY
     Dosage: UNK, 2X/DAY (BID)
     Route: 048
  6. IBANDRONATE SODIUM. [Concomitant]
     Active Substance: IBANDRONATE SODIUM
     Indication: OSTEOPENIA
     Dosage: UNK
  7. CALCIUM [Concomitant]
     Active Substance: CALCIUM
     Indication: PRODUCT USED FOR UNKNOWN INDICATION
  8. BRIVIACT [Suspect]
     Active Substance: BRIVARACETAM
     Indication: GENERALISED TONIC-CLONIC SEIZURE
  9. BRIVIACT [Suspect]
     Active Substance: BRIVARACETAM
     Indication: EPILEPSY
     Dosage: 2.5 ML, 2X/DAY (BID)
     Route: 048
     Dates: start: 201702
  10. BRIVIACT [Suspect]
     Active Substance: BRIVARACETAM
     Indication: SEIZURE
     Dosage: 2.5 ML, 2X/DAY (BID)
     Route: 048
     Dates: start: 20170508, end: 20170623
  11. BRIVIACT [Suspect]
     Active Substance: BRIVARACETAM
     Dosage: 2.5 ML, 2X/DAY (BID)
     Dates: start: 20170628
  12. VITAMIN B [Concomitant]
     Active Substance: VITAMIN B
     Indication: SUPPLEMENTATION THERAPY
     Dosage: UNK
  13. ALBUTEROL. [Concomitant]
     Active Substance: ALBUTEROL
     Indication: ASTHMA
     Dosage: UNK, AS NEEDED (PRN)
  14. DILANTIN [Suspect]
     Active Substance: PHENYTOIN
     Indication: PRODUCT USED FOR UNKNOWN INDICATION
  15. BONIVA [Concomitant]
     Active Substance: IBANDRONATE SODIUM
     Indication: PRODUCT USED FOR UNKNOWN INDICATION
     Dosage: UNK, EV 30 DAYS
     Route: 048
     Dates: start: 201703
  16. PARACETAMOL [Concomitant]
     Active Substance: ACETAMINOPHEN
     Indication: PRODUCT USED FOR UNKNOWN INDICATION
  17. ADVAIR HFA [Concomitant]
     Active Substance: FLUTICASONE PROPIONATE\SALMETEROL XINAFOATE
     Indication: ASTHMA
     Dosage: UNK, AS NEEDED (PRN)
  18. OXYCODONE [Suspect]
     Active Substance: OXYCODONE
     Indication: PAIN
  19. VITAMIN D3 [Concomitant]
     Active Substance: CHOLECALCIFEROL
     Indication: SUPPLEMENTATION THERAPY
     Dosage: 2000 UNIT, 2X/DAY (BID)
     Route: 048
  20. VITAMIN C [Concomitant]
     Active Substance: ASCORBIC ACID
     Indication: SUPPLEMENTATION THERAPY
     Dosage: UNK
     Route: 048
  21. CHROMIUM PICOLINATE [Concomitant]
     Active Substance: CHROMIUM PICOLINATE
     Indication: PRODUCT USED FOR UNKNOWN INDICATION
  22. TAURINE [Concomitant]
     Active Substance: TAURINE
     Indication: MUSCLE SPASMS
  23. VITAMIN D [Concomitant]
     Active Substance: CHOLECALCIFEROL
     Indication: PRODUCT USED FOR UNKNOWN INDICATION
  24. ESLICARBAZEPINE ACETATE [Concomitant]
     Active Substance: ESLICARBAZEPINE ACETATE
     Indication: PRODUCT USED FOR UNKNOWN INDICATION
  25. FOSAMAX [Concomitant]
     Active Substance: ALENDRONATE SODIUM
     Indication: PRODUCT USED FOR UNKNOWN INDICATION
  26. BRIVIACT [Suspect]
     Active Substance: BRIVARACETAM
     Indication: PARTIAL SEIZURES
     Dosage: 25 MG, 2X/DAY (BID)
     Route: 048
     Dates: start: 20170211, end: 20170508
  27. BRIVIACT [Suspect]
     Active Substance: BRIVARACETAM
     Dosage: TIMES MORE THAN HER USUAL DOSE OF 2.5 ML TWICE A DAY
     Route: 048
     Dates: start: 20170623, end: 20170628
  28. MAGNESIUM [Concomitant]
     Active Substance: MAGNESIUM
     Indication: MUSCLE SPASMS
     Dosage: UNK
  29. ACYCLOVIR. [Concomitant]
     Active Substance: ACYCLOVIR
     Indication: HERPES ZOSTER
  30. BRIVIACT [Suspect]
     Active Substance: BRIVARACETAM
     Indication: EPILEPSY
  31. VIMPAT [Suspect]
     Active Substance: LACOSAMIDE
     Indication: SEIZURE
     Route: 042
  32. DEPAKOTE [Suspect]
     Active Substance: DIVALPROEX SODIUM
     Indication: PRODUCT USED FOR UNKNOWN INDICATION
     Dosage: UNK
  33. SYNTHROID [Suspect]
     Active Substance: LEVOTHYROXINE SODIUM
     Indication: PRODUCT USED FOR UNKNOWN INDICATION
     Dosage: 75 MG, DAILY EXCEPT SUNDAY
     Route: 048

REACTIONS (66)
  - Balance disorder [Not Recovered/Not Resolved]
  - Abdominal pain upper [Recovering/Resolving]
  - Stomatitis [Recovered/Resolved]
  - Headache [Recovering/Resolving]
  - Fall [Unknown]
  - Tongue exfoliation [Not Recovered/Not Resolved]
  - Muscle spasms [Unknown]
  - Oral discomfort [Recovering/Resolving]
  - Ear haemorrhage [Unknown]
  - Blood magnesium decreased [Unknown]
  - Product taste abnormal [Unknown]
  - Feeling abnormal [Unknown]
  - Osteopenia [Unknown]
  - Mass [Not Recovered/Not Resolved]
  - Abdominal distension [Recovered/Resolved]
  - Speech disorder [Not Recovered/Not Resolved]
  - Insomnia [Not Recovered/Not Resolved]
  - Depression [Not Recovered/Not Resolved]
  - Renal cyst [Not Recovered/Not Resolved]
  - Cerebellar atrophy [Not Recovered/Not Resolved]
  - Slow response to stimuli [Recovering/Resolving]
  - Abdominal pain [Not Recovered/Not Resolved]
  - Retinal tear [Not Recovered/Not Resolved]
  - Urticaria [Recovering/Resolving]
  - Weight decreased [Not Recovered/Not Resolved]
  - Dyspepsia [Not Recovered/Not Resolved]
  - Oropharyngeal pain [Recovering/Resolving]
  - Rib fracture [Unknown]
  - Loss of consciousness [Recovered/Resolved]
  - Cognitive disorder [Not Recovered/Not Resolved]
  - Memory impairment [Recovering/Resolving]
  - Thinking abnormal [Not Recovered/Not Resolved]
  - Decreased immune responsiveness [Unknown]
  - Off label use [Unknown]
  - Rectal haemorrhage [Not Recovered/Not Resolved]
  - Fear of falling [Recovering/Resolving]
  - Malaise [Recovering/Resolving]
  - Thermal burn [Recovered/Resolved]
  - Chromaturia [Not Recovered/Not Resolved]
  - Dizziness [Not Recovered/Not Resolved]
  - Oral mucosal blistering [Recovered/Resolved]
  - Skin abrasion [Unknown]
  - Tongue biting [Unknown]
  - Laceration [Recovered/Resolved]
  - Mouth ulceration [Recovered/Resolved]
  - Pharyngeal erythema [Recovered/Resolved]
  - Skin exfoliation [Not Recovered/Not Resolved]
  - Seizure [Recovered/Resolved]
  - Thrombocytopenia [Unknown]
  - Gastrointestinal pain [Recovering/Resolving]
  - Hypersomnia [Recovering/Resolving]
  - Fatigue [Recovering/Resolving]
  - Disturbance in attention [Recovering/Resolving]
  - Heart rate abnormal [Recovered/Resolved]
  - Urinary tract infection [Recovered/Resolved]
  - Skin discolouration [Recovering/Resolving]
  - Asthenia [Recovering/Resolving]
  - Confusional state [Recovering/Resolving]
  - Erythema [Recovering/Resolving]
  - Aphonia [Recovered/Resolved]
  - Oesophageal pain [Recovering/Resolving]
  - Pharyngeal oedema [Recovering/Resolving]
  - Somnolence [Not Recovered/Not Resolved]
  - Cystitis interstitial [Not Recovered/Not Resolved]
  - Herpes zoster [Recovered/Resolved]
  - Pyrexia [Unknown]

NARRATIVE: CASE EVENT DATE: 2015
